FAERS Safety Report 7743645-3 (Version None)
Quarter: 2011Q3

REPORT INFORMATION
  Report Type: 
  Country: None (occurrence: None)
  Receive Date: 20110912
  Receipt Date: 20110907
  Transmission Date: 20111222
  Serious: Yes (Hospitalization)
  Sender: FDA-Public Use
  Company Number: US-MERCK-1107USA02888

PATIENT
  Age: 84 Year
  Sex: Male

DRUGS (10)
  1. DONEPEZIL HYDROCHLORIDE [Concomitant]
     Route: 065
  2. LANTUS [Suspect]
     Route: 058
     Dates: start: 20110713, end: 20110701
  3. OMEPRAZOLE [Concomitant]
     Route: 065
  4. ENALAPRIL MALEATE [Concomitant]
     Route: 065
  5. VERAPAMIL [Concomitant]
     Route: 065
  6. JANUVIA [Suspect]
     Route: 048
     Dates: end: 20110701
  7. PREDNISONE [Concomitant]
     Route: 065
  8. LANTUS [Suspect]
     Route: 058
     Dates: start: 20110701
  9. POLY IRON 150 [Concomitant]
     Route: 065
  10. FUROSEMIDE [Concomitant]
     Route: 065

REACTIONS (2)
  - HYPOGLYCAEMIA [None]
  - BLOOD GLUCOSE FLUCTUATION [None]
